FAERS Safety Report 16277702 (Version 1)
Quarter: 2019Q2

REPORT INFORMATION
  Report Type: Spontaneous
  Country: US (occurrence: US)
  Receive Date: 20190506
  Receipt Date: 20190506
  Transmission Date: 20190711
  Serious: Yes (Life-Threatening, Hospitalization, Other)
  Sender: FDA-Public Use
  Company Number: US-MYLANLABS-2019M1041651

PATIENT
  Age: 87 Year
  Sex: Female

DRUGS (1)
  1. DIPHENHYDRAMINE. [Suspect]
     Active Substance: DIPHENHYDRAMINE
     Indication: PRODUCT USED FOR UNKNOWN INDICATION
     Dosage: FORMULATION: AT LEAST 25 PILLS
     Route: 065

REACTIONS (4)
  - Ventricular tachycardia [Unknown]
  - Electrocardiogram QT prolonged [Unknown]
  - Overdose [Unknown]
  - Torsade de pointes [Unknown]
